FAERS Safety Report 7413749-3 (Version None)
Quarter: 2011Q2

REPORT INFORMATION
  Report Type: 
  Country: None (occurrence: None)
  Receive Date: 20110413
  Receipt Date: 20110405
  Transmission Date: 20111010
  Serious: Yes (Hospitalization)
  Sender: FDA-Public Use
  Company Number: CA-AMGEN-CANSP2011017980

PATIENT
  Age: 84 Year
  Sex: Male
  Weight: 74.8 kg

DRUGS (6)
  1. SULFASALAZINE [Concomitant]
     Dosage: 1.5 G, UNK
  2. COLCHICINE [Concomitant]
     Dosage: 0.6 MG, QD
  3. AMLODIPINE [Concomitant]
     Dosage: 5 MG, QD
  4. METOPROLOL TARTRATE [Concomitant]
     Dosage: 100 MG, QD
  5. PERCOCET [Concomitant]
     Dosage: UNK UNK, PRN
     Route: 048
  6. ENBREL [Suspect]
     Indication: RHEUMATOID ARTHRITIS
     Dosage: 50 MG, QWK
     Route: 058

REACTIONS (3)
  - ABDOMINAL PAIN [None]
  - GASTRIC CANCER [None]
  - DYSPEPSIA [None]
